FAERS Safety Report 23261833 (Version 3)
Quarter: 2023Q4

REPORT INFORMATION
  Report Type: Report from Study
  Country: CA (occurrence: CA)
  Receive Date: 20231205
  Receipt Date: 20231218
  Transmission Date: 20240110
  Serious: Yes (Death)
  Sender: FDA-Public Use
  Company Number: CA-002147023-NVSC2023CA256750

PATIENT
  Age: 80 Year
  Sex: Female

DRUGS (2)
  1. MEKINIST [Suspect]
     Active Substance: TRAMETINIB DIMETHYL SULFOXIDE
     Indication: Anaplastic thyroid cancer
     Dosage: (STRENGTH 2 MG X 2 BOTTLES)
     Route: 065
     Dates: start: 20231025
  2. TAFINLAR [Suspect]
     Active Substance: DABRAFENIB MESYLATE
     Indication: Anaplastic thyroid cancer
     Dosage: (STRENGTH: 75 MG X 2 BOTTLES)
     Route: 065
     Dates: start: 20231025

REACTIONS (1)
  - Death [Fatal]
